FAERS Safety Report 20736041 (Version 1)
Quarter: 2022Q2

REPORT INFORMATION
  Report Type: Report from Study
  Country: US (occurrence: US)
  Receive Date: 20220421
  Receipt Date: 20220421
  Transmission Date: 20220721
  Serious: Yes (Death, Other)
  Sender: FDA-Public Use
  Company Number: US-PFIZER INC-2021795986

PATIENT

DRUGS (12)
  1. VINCRISTINE SULFATE [Suspect]
     Active Substance: VINCRISTINE SULFATE
     Indication: Mantle cell lymphoma
     Dosage: 1.4 MG/M2, CYCLIC (ON DAY 6, 13, EVERY 21 DAYS )
     Route: 042
  2. DOXORUBICIN HYDROCHLORIDE [Suspect]
     Active Substance: DOXORUBICIN HYDROCHLORIDE
     Indication: Mantle cell lymphoma
     Dosage: 16.6 MG/M2, CYCLIC (DAILY FOR 3 DAYS ADMINISTERED AS A CONTINUOUS INTRAVENOUS INFUSION (CIVI) ON DAY
     Route: 042
  3. METHOTREXATE SODIUM [Suspect]
     Active Substance: METHOTREXATE SODIUM
     Indication: Mantle cell lymphoma
     Dosage: UNK UNK, CYCLIC, (TOTAL OF 6 CYCLES WERE GIVEN AT 3-WEEK INTERVALS)
     Route: 042
  4. CYTARABINE [Suspect]
     Active Substance: CYTARABINE
     Indication: Mantle cell lymphoma
     Dosage: UNK UNK, CYCLIC, (TOTAL OF 6 CYCLES WERE GIVEN AT 3-WEEK INTERVALS)
  5. RITUXIMAB [Suspect]
     Active Substance: RITUXIMAB
     Indication: Mantle cell lymphoma
     Dosage: 375 MG/M2, CYCLIC, (EVERY 2 MONTHS)
  6. CYCLOPHOSPHAMIDE [Suspect]
     Active Substance: CYCLOPHOSPHAMIDE
     Indication: Mantle cell lymphoma
     Dosage: 300 MG, CYCLIC (IV OVER 2 HOURS EVERY 12 HOURS FOR 6 DOSES ON DAYS 3-5, EVERY 21 DAYS)
     Route: 042
  7. DEXAMETHASONE [Suspect]
     Active Substance: DEXAMETHASONE
     Indication: Mantle cell lymphoma
     Dosage: 40 MG, CYCLIC (IV OR ORALLY ON DAYS 3-6, DAYS 13-16, EVERY 21 DAYS )
  8. OFATUMUMAB [Suspect]
     Active Substance: OFATUMUMAB
     Indication: Mantle cell lymphoma
     Dosage: 1000 MG, CYCLIC (DAY 1, EVERY 21 DAYS)
     Route: 042
  9. ACETAMINOPHEN [Concomitant]
     Active Substance: ACETAMINOPHEN
     Indication: Premedication
     Dosage: 650 MG
     Route: 048
  10. DIPHENHYDRAMINE [Concomitant]
     Active Substance: DIPHENHYDRAMINE
     Indication: Premedication
     Dosage: 25 MG
     Route: 042
  11. METHYLPREDNISOLONE [Concomitant]
     Active Substance: METHYLPREDNISOLONE
     Indication: Premedication
     Dosage: 40 MG
  12. MESNA [Concomitant]
     Active Substance: MESNA
     Dosage: 600 MG/M2 PER DOSE IV OVER 24 HOURS DAILY ON DAYS 3-5
     Route: 042

REACTIONS (2)
  - Second primary malignancy [Fatal]
  - Acute myeloid leukaemia [Fatal]
